FAERS Safety Report 10215040 (Version 1)
Quarter: 2014Q2

REPORT INFORMATION
  Report Type: Spontaneous
  Country: FR (occurrence: FR)
  Receive Date: 20140603
  Receipt Date: 20140603
  Transmission Date: 20141212
  Serious: Yes (Death, Hospitalization)
  Sender: FDA-Public Use
  Company Number: FR-PFIZER INC-2014150634

PATIENT
  Age: 37 Year
  Sex: Female

DRUGS (14)
  1. RAMIPRIL [Suspect]
     Dosage: 10 MG, DAILY
     Route: 048
  2. METFORMIN HCL [Suspect]
     Indication: TYPE 2 DIABETES MELLITUS
     Dosage: 1000 MG, 3X/DAY
     Route: 048
  3. BROMAZEPAM [Suspect]
     Dosage: UNK
     Route: 048
  4. ZOPICLONE [Suspect]
     Dosage: 1 DF, DAILY
     Route: 048
  5. ISOPTINE [Suspect]
     Dosage: 240 MG, DAILY
     Route: 048
  6. LANTUS [Concomitant]
     Dosage: UNK
  7. INEXIUM [Concomitant]
     Dosage: UNK
  8. NOVORAPID [Concomitant]
     Dosage: UNK
  9. DIFFU K [Concomitant]
     Dosage: UNK
  10. ALDACTONE [Concomitant]
     Dosage: UNK
  11. LYRICA [Concomitant]
     Dosage: UNK
  12. IBUPROFENE [Concomitant]
     Dosage: UNK
  13. VOLTARENE [Concomitant]
     Dosage: UNK
  14. NIZORAL [Concomitant]
     Dosage: UNK

REACTIONS (8)
  - Cardio-respiratory arrest [Fatal]
  - Diarrhoea [Unknown]
  - Renal failure [Unknown]
  - Hypotension [Unknown]
  - Bradycardia [Unknown]
  - Multi-organ failure [Unknown]
  - Metabolic acidosis [Unknown]
  - Rhabdomyolysis [Unknown]
